FAERS Safety Report 6971814-9 (Version None)
Quarter: 2010Q3

REPORT INFORMATION
  Report Type: 
  Country: None (occurrence: None)
  Receive Date: 20100903
  Receipt Date: 20100825
  Transmission Date: 20110219
  Serious: Yes (Other)
  Sender: FDA-Public Use
  Company Number: 2010JP004326

PATIENT
  Age: 70 Year
  Sex: Female
  Weight: 48.2 kg

DRUGS (13)
  1. PROGRAF [Suspect]
     Indication: RHEUMATOID ARTHRITIS
     Dosage: 1 MG, UID/QD, ORAL
     Route: 048
     Dates: start: 20090116
  2. METHOTREXATE [Concomitant]
  3. FOLIAMIN (FOLIC ACID) TABLET [Concomitant]
  4. REBAMIPIDE (REBAMIPIDE) TABLET [Concomitant]
  5. NEUROVITAN (OCTOTIAMINE, PYRIDOXINE HYDROCHLORIDE, CYANOCOBALAMIN, RIB [Concomitant]
  6. AZULFIDINE [Concomitant]
  7. ALFAROL (ALFACALCIDOL) CAPSULE [Concomitant]
  8. BONALON (ALENDRONATE SODIUM) TABLET [Concomitant]
  9. MICARDIS [Concomitant]
  10. ERYTHROCIN (ERYTHROMYCIN ETHYLSUCCINATE) TABLET [Concomitant]
  11. PREDNISOLONE TAB [Concomitant]
  12. ATENOLOL [Concomitant]
  13. LIPOVAS (SIMVASTATIN) TABLET [Concomitant]

REACTIONS (3)
  - ATRIOVENTRICULAR BLOCK COMPLETE [None]
  - BLOOD PRESSURE INCREASED [None]
  - TACHYCARDIA [None]
